FAERS Safety Report 6347066-X (Version None)
Quarter: 2009Q3

REPORT INFORMATION
  Report Type: 
  Country: None (occurrence: None)
  Receive Date: 20090910
  Receipt Date: 20090902
  Transmission Date: 20100115
  Serious: Yes (Hospitalization, Other)
  Sender: FDA-Public Use
  Company Number: US-PFIZER INC-2009264934

PATIENT
  Sex: Female
  Weight: 68.038 kg

DRUGS (12)
  1. NORVASC [Suspect]
     Indication: BLOOD PRESSURE INCREASED
     Dosage: 2.5 MG, UNK
     Dates: start: 19940101
  2. NORVASC [Suspect]
     Dosage: 5 MG, UNK
     Dates: start: 19950101
  3. NORVASC [Suspect]
     Dosage: 10 MG
     Dates: start: 20090101
  4. XANAX [Concomitant]
     Dosage: 0.25 MG, 1X/DAY
  5. MULTI-VITAMINS [Concomitant]
     Dosage: UNK
  6. LEVOTHYROXINE [Concomitant]
     Dosage: UNK
  7. FUROSEMIDE [Concomitant]
     Dosage: 20 MG, UNK
  8. ASCORBIC ACID [Concomitant]
     Dosage: UNK
  9. TOPROL-XL [Concomitant]
     Dosage: 50 MG, UNK
     Dates: start: 20030101, end: 20040101
  10. TOPROL-XL [Concomitant]
     Dosage: 25 MG, UNK
     Dates: start: 20040101, end: 20090601
  11. CANDESARTAN [Concomitant]
     Dosage: 32 MG, UNK
     Dates: end: 20090601
  12. CANDESARTAN [Concomitant]
     Dosage: 16 MG, UNK
     Dates: start: 20090601

REACTIONS (6)
  - ABDOMINAL DISCOMFORT [None]
  - GALLBLADDER DISORDER [None]
  - HEADACHE [None]
  - PAIN [None]
  - PLATELET COUNT DECREASED [None]
  - SPLENOMEGALY [None]
